FAERS Safety Report 7658290-8 (Version None)
Quarter: 2011Q3

REPORT INFORMATION
  Report Type: 
  Country: None (occurrence: None)
  Receive Date: 20110805
  Receipt Date: 20110802
  Transmission Date: 20111222
  Serious: No
  Sender: FDA-Public Use
  Company Number: US-PFIZER INC-2011176670

PATIENT
  Age: 79 Year
  Sex: Female
  Weight: 46.3 kg

DRUGS (5)
  1. ALDACTONE [Suspect]
     Indication: POSTOPERATIVE CARE
     Dosage: 25 MG, UNK
     Route: 048
  2. GUAIFENESIN [Concomitant]
     Indication: PROPHYLAXIS
     Dosage: 0.5 MG, UNK
  3. SIMVASTATIN [Concomitant]
     Indication: BLOOD CHOLESTEROL INCREASED
     Dosage: 10 MG, UNK
  4. AMLODIPINE BESYLATE [Suspect]
     Dosage: 5 MG, UNK
     Dates: start: 20101101
  5. ALDACTONE [Suspect]
     Dosage: 12.5 MG, UNK
     Route: 048

REACTIONS (1)
  - WEIGHT DECREASED [None]
